FAERS Safety Report 8523914-X (Version None)
Quarter: 2012Q3

REPORT INFORMATION
  Report Type: 
  Country: None (occurrence: None)
  Receive Date: 20120720
  Receipt Date: 20120716
  Transmission Date: 20120928
  Serious: Yes (Other)
  Sender: FDA-Public Use
  Company Number: IT-BAYER-2012-059811

PATIENT
  Age: 83 Year
  Sex: Male

DRUGS (7)
  1. NORVASC [Concomitant]
     Dosage: DAILY DOSE 5 MG
     Route: 048
  2. ROCALTROL [Concomitant]
     Dosage: DAILY DOSE .25 ?G
     Route: 048
  3. CIPROFLOXACIN HCL [Suspect]
     Indication: URINARY TRACT INFECTION
     Dosage: DAILY DOSE 500 MG
     Route: 048
     Dates: start: 20120528, end: 20120601
  4. PROMAZINE HYDROCHLORIDE [Suspect]
     Indication: AGITATION
     Dosage: 10 GTT, ONCE
     Route: 048
     Dates: start: 20120531, end: 20120531
  5. LASIX [Concomitant]
  6. OMEPRAZOLE [Concomitant]
     Dosage: DAILY DOSE 20 MG
     Route: 048
  7. FERRO-GRAD FOLIC [Concomitant]
     Dosage: UNK

REACTIONS (4)
  - CLONUS [None]
  - HEMIANOPIA [None]
  - PAIN IN EXTREMITY [None]
  - EPILEPSY [None]
